FAERS Safety Report 25690718 (Version 2)
Quarter: 2025Q3

REPORT INFORMATION
  Report Type: Spontaneous
  Country: US (occurrence: US)
  Receive Date: 20250818
  Receipt Date: 20250828
  Transmission Date: 20251020
  Serious: Yes (Other)
  Sender: FRESENIUS KABI
  Company Number: US-FreseniusKabi-FK202511287

PATIENT
  Age: 73 Year
  Sex: Male
  Weight: 70.4 kg

DRUGS (9)
  1. HEPARIN SODIUM [Suspect]
     Active Substance: HEPARIN SODIUM
     Indication: Anticoagulant therapy
     Route: 040
     Dates: start: 20250718
  2. ASPIRIN [Concomitant]
     Active Substance: ASPIRIN
     Indication: Product used for unknown indication
  3. PRASUGREL 10 [Concomitant]
     Indication: Product used for unknown indication
  4. metop XL [Concomitant]
     Indication: Product used for unknown indication
  5. LOSARTAN [Concomitant]
     Active Substance: LOSARTAN
     Indication: Product used for unknown indication
  6. ATORVASTATIN [Concomitant]
     Active Substance: ATORVASTATIN
     Indication: Product used for unknown indication
  7. ZETIA [Concomitant]
     Active Substance: EZETIMIBE
     Indication: Product used for unknown indication
  8. JARDIANCE [Concomitant]
     Active Substance: EMPAGLIFLOZIN
     Indication: Product used for unknown indication
  9. NTG PRN SLNG [Concomitant]
     Indication: Product used for unknown indication

REACTIONS (3)
  - Vascular stent thrombosis [Unknown]
  - Drug ineffective [Unknown]
  - Heparin resistance [Unknown]

NARRATIVE: CASE EVENT DATE: 20250718
